FAERS Safety Report 5670636-9 (Version None)
Quarter: 2008Q1

REPORT INFORMATION
  Report Type: 
  Country: None (occurrence: None)
  Receive Date: 20080314
  Receipt Date: 20080314
  Transmission Date: 20080703
  Serious: Yes (Hospitalization)
  Sender: FDA-Public Use
  Company Number: None

PATIENT
  Age: 85 Year
  Sex: Female

DRUGS (2)
  1. IRBESARTAN [Suspect]
     Indication: HYPERTENSION
     Dosage: 75 MG DAILY PO
     Route: 048
     Dates: start: 20071203, end: 20071223
  2. VITAMIN D SUPPLEMENT [Concomitant]

REACTIONS (1)
  - LEUKOCYTOCLASTIC VASCULITIS [None]
